FAERS Safety Report 19182507 (Version 11)
Quarter: 2023Q2

REPORT INFORMATION
  Report Type: Other
  Country: DE (occurrence: None)
  Receive Date: 20210427
  Receipt Date: 20230518
  Transmission Date: 20230721
  Serious: Yes (Hospitalization, Other)
  Sender: FDA-Public Use
  Company Number: DE-ROCHE-2348962

PATIENT
  Age: 42 Year
  Sex: Female
  Weight: 119 kg

DRUGS (15)
  1. OCREVUS [Suspect]
     Active Substance: OCRELIZUMAB
     Indication: Relapsing-remitting multiple sclerosis
     Dosage: ON 03/DEC/2019, SHE RECEIVED OCRELIZUMAB INFUSION.
     Route: 042
     Dates: start: 20190625
  2. OCREVUS [Suspect]
     Active Substance: OCRELIZUMAB
     Route: 042
     Dates: start: 20190709
  3. OCREVUS [Suspect]
     Active Substance: OCRELIZUMAB
     Route: 042
  4. OCREVUS [Suspect]
     Active Substance: OCRELIZUMAB
     Dosage: 3RD MAINTENANCE INFUSION
     Route: 042
     Dates: start: 20210309
  5. OCREVUS [Suspect]
     Active Substance: OCRELIZUMAB
     Route: 042
  6. CORTISONE [Suspect]
     Active Substance: CORTISONE
     Indication: Product used for unknown indication
     Route: 065
     Dates: start: 20190709
  7. LEVOTHYROXINE [Concomitant]
     Active Substance: LEVOTHYROXINE
  8. PRAMIPEXOLE [Concomitant]
     Active Substance: PRAMIPEXOLE
  9. RANITIDINE [Concomitant]
     Active Substance: RANITIDINE
     Dates: start: 20200101
  10. RANITIDINE [Concomitant]
     Active Substance: RANITIDINE
     Dates: start: 20200115
  11. RANITIDINE [Concomitant]
     Active Substance: RANITIDINE
  12. PANTOPRAZOLE [Concomitant]
     Active Substance: PANTOPRAZOLE
  13. RABEPRAZOLE [Concomitant]
     Active Substance: RABEPRAZOLE
     Dates: start: 20200101
  14. RABEPRAZOLE [Concomitant]
     Active Substance: RABEPRAZOLE
     Dates: start: 20200115
  15. RABEPRAZOLE [Concomitant]
     Active Substance: RABEPRAZOLE

REACTIONS (47)
  - Diarrhoea [Recovered/Resolved]
  - Vomiting [Recovered/Resolved]
  - Haematochezia [Not Recovered/Not Resolved]
  - Dyschezia [Not Recovered/Not Resolved]
  - Anal incontinence [Recovering/Resolving]
  - Multiple sclerosis [Not Recovered/Not Resolved]
  - Wound complication [Recovered/Resolved]
  - Varicose vein [Recovered/Resolved]
  - Body temperature increased [Recovered/Resolved]
  - Blood pressure increased [Recovered/Resolved]
  - Fatigue [Recovered/Resolved]
  - Hot flush [Recovered/Resolved]
  - Erythema [Recovered/Resolved]
  - Skin burning sensation [Recovered/Resolved]
  - Night sweats [Recovered/Resolved]
  - Food craving [Recovered/Resolved]
  - Blood pressure increased [Recovered/Resolved]
  - Irritability [Recovered/Resolved]
  - Asthenia [Recovering/Resolving]
  - Malaise [Recovered/Resolved]
  - Oesophagitis [Recovered/Resolved]
  - Nasopharyngitis [Recovered/Resolved]
  - Tenosynovitis [Recovered/Resolved]
  - Sleep disorder [Not Recovered/Not Resolved]
  - Premature menopause [Unknown]
  - Hypersensitivity [Recovered/Resolved]
  - Food craving [Recovered/Resolved]
  - Throat irritation [Recovered/Resolved]
  - Dysphagia [Recovered/Resolved]
  - COVID-19 [Recovering/Resolving]
  - Alopecia [Recovered/Resolved]
  - Alopecia [Not Recovered/Not Resolved]
  - Abdominal pain [Recovered/Resolved]
  - Cholelithiasis [Not Recovered/Not Resolved]
  - Intervertebral disc protrusion [Not Recovered/Not Resolved]
  - Spinal stenosis [Not Recovered/Not Resolved]
  - Nerve compression [Not Recovered/Not Resolved]
  - Sleep apnoea syndrome [Recovering/Resolving]
  - Ulcer [Not Recovered/Not Resolved]
  - Gastritis [Not Recovered/Not Resolved]
  - Diaphragmatic hernia [Not Recovered/Not Resolved]
  - Weight increased [Recovering/Resolving]
  - Proctitis [Not Recovered/Not Resolved]
  - Full blood count abnormal [Recovered/Resolved]
  - Myocarditis [Not Recovered/Not Resolved]
  - Pneumonia [Recovered/Resolved]
  - Pleurisy [Recovered/Resolved]

NARRATIVE: CASE EVENT DATE: 20190625
